FAERS Safety Report 15023698 (Version 2)
Quarter: 2018Q2

REPORT INFORMATION
  Report Type: Spontaneous
  Country: DE (occurrence: DE)
  Receive Date: 20180618
  Receipt Date: 20180627
  Transmission Date: 20180711
  Serious: Yes (Life-Threatening, Hospitalization)
  Sender: FDA-Public Use
  Company Number: DE-MYLANLABS-2018M1041166

PATIENT
  Age: 25 Year
  Sex: Female

DRUGS (2)
  1. AMITRIPTYLINE [Suspect]
     Active Substance: AMITRIPTYLINE
     Indication: DEPRESSION
     Route: 065
  2. QUETIAPINE. [Suspect]
     Active Substance: QUETIAPINE
     Indication: DEPRESSION
     Route: 065

REACTIONS (12)
  - Suicide attempt [Recovered/Resolved]
  - Cardiogenic shock [Recovered/Resolved]
  - Toxicity to various agents [Recovered/Resolved]
  - Anticholinergic syndrome [Recovered/Resolved]
  - Myoclonus [Recovered/Resolved]
  - Shock [Recovering/Resolving]
  - Cardiotoxicity [Recovered/Resolved]
  - Intentional overdose [Recovered/Resolved]
  - Ventricular tachycardia [Recovered/Resolved]
  - Coma [Recovered/Resolved]
  - Arrhythmia [Recovered/Resolved]
  - Cardiovascular disorder [Recovered/Resolved]
